FAERS Safety Report 18966820 (Version 1)
Quarter: 2021Q1

REPORT INFORMATION
  Report Type: Spontaneous
  Country: US (occurrence: US)
  Receive Date: 20210304
  Receipt Date: 20210304
  Transmission Date: 20210420
  Serious: No
  Sender: FDA-Public Use
  Company Number: US-AUROBINDO-AUR-APL-2020-059794

PATIENT
  Age: 21 Year
  Sex: Male
  Weight: 56.6 kg

DRUGS (1)
  1. LEVETIRACETAM TABLETS 500 MG [Suspect]
     Active Substance: LEVETIRACETAM
     Indication: SEIZURE
     Dosage: 1 DOSAGE FORM, TWO TIMES A DAY
     Route: 048
     Dates: start: 202011, end: 202011

REACTIONS (2)
  - Feeling abnormal [Recovered/Resolved]
  - Anger [Recovered/Resolved]
